FAERS Safety Report 14264721 (Version 2)
Quarter: 2018Q1

REPORT INFORMATION
  Report Type: Spontaneous
  Country: US (occurrence: US)
  Receive Date: 20171208
  Receipt Date: 20180202
  Transmission Date: 20180508
  Serious: Yes (Other)
  Sender: FDA-Public Use
  Company Number: US-BAYER-2017-231534

PATIENT
  Age: 40 Year
  Sex: Female
  Weight: 90.3 kg

DRUGS (4)
  1. MIRENA [Suspect]
     Active Substance: LEVONORGESTREL
     Indication: CONTRACEPTION
     Dosage: 20 MCG/24HR, CONT
     Route: 015
     Dates: start: 20171004, end: 20171113
  2. ACETIC ACID. [Concomitant]
     Active Substance: ACETIC ACID
  3. MIRENA [Suspect]
     Active Substance: LEVONORGESTREL
     Indication: CONTRACEPTION
  4. SILVER NITRATE. [Concomitant]
     Active Substance: SILVER NITRATE
     Indication: HAEMOSTASIS

REACTIONS (5)
  - Genital haemorrhage [None]
  - Cervix disorder [None]
  - Unintentional medical device removal [None]
  - Cervical dysplasia [None]
  - Human papilloma virus test positive [None]

NARRATIVE: CASE EVENT DATE: 20171113
